FAERS Safety Report 8581742-3 (Version None)
Quarter: 2012Q3

REPORT INFORMATION
  Report Type: 
  Country: None (occurrence: None)
  Receive Date: 20120801
  Receipt Date: 20120801
  Transmission Date: 20120928
  Serious: Yes (Life-Threatening, Hospitalization, Other)
  Sender: FDA-Public Use
  Company Number: None

PATIENT
  Age: 41 Year
  Sex: Female
  Weight: 77.1115 kg

DRUGS (1)
  1. MIRAPEX [Suspect]
     Indication: RESTLESS LEGS SYNDROME
     Dosage: 2 MG NIGHTTIME
     Dates: start: 20120101, end: 20120624

REACTIONS (12)
  - ABNORMAL BEHAVIOUR [None]
  - HOMELESS [None]
  - PARTNER STRESS [None]
  - THINKING ABNORMAL [None]
  - INCORRECT DOSE ADMINISTERED [None]
  - VICTIM OF SEXUAL ABUSE [None]
  - SUICIDE ATTEMPT [None]
  - HEADACHE [None]
  - UNEMPLOYMENT [None]
  - ECONOMIC PROBLEM [None]
  - MOOD SWINGS [None]
  - INSOMNIA [None]
